FAERS Safety Report 18237563 (Version 1)
Quarter: 2020Q3

REPORT INFORMATION
  Report Type: Report from Study
  Country: FR (occurrence: FR)
  Receive Date: 20200907
  Receipt Date: 20200907
  Transmission Date: 20201103
  Serious: Yes (Death)
  Sender: FDA-Public Use
  Company Number: FR-PFIZER INC-2020343243

PATIENT

DRUGS (5)
  1. DOXORUBICIN HCL [Suspect]
     Active Substance: DOXORUBICIN HYDROCHLORIDE
     Indication: BLADDER CANCER
     Dosage: 30 MG/M2, CYCLIC (DAY 2; EVERY 2 WK FOR A TOTAL OF SIX CYCLES)
  2. METHOTREXATE. [Suspect]
     Active Substance: METHOTREXATE
     Indication: BLADDER CANCER
     Dosage: 30 MG/M2, CYCLIC ( ON DAY 1: EVERY 2 WK FOR A TOTAL OF SIX CYCLES)
  3. VINBLASTINE [Suspect]
     Active Substance: VINBLASTINE
     Indication: BLADDER CANCER
     Dosage: 3 MG/M2, CYCLIC (ON DAY 2: EVERY 2 WK FOR A TOTAL OF SIX)
  4. CISPLATIN. [Suspect]
     Active Substance: CISPLATIN
     Indication: BLADDER CANCER
     Dosage: 70 MG/M2, CYCLIC (ON DAY 2: EVERY 2 WK FOR A TOTAL OF SIX CYCLES)
  5. GRANULOCYTE COLONY STIMULATING FACTOR [Concomitant]
     Active Substance: GRANULOCYTE COLONY-STIMULATING FACTOR NOS
     Indication: BLADDER CANCER
     Dosage: UNK, CYCLIC (DAY 3 TO 9, EVERY 2 WEEKS)

REACTIONS (1)
  - Sudden death [Fatal]
